FAERS Safety Report 20063524 (Version 3)
Quarter: 2023Q4

REPORT INFORMATION
  Report Type: Report from Study
  Country: CA (occurrence: CA)
  Receive Date: 20211112
  Receipt Date: 20231102
  Transmission Date: 20240110
  Serious: Yes (Other)
  Sender: FDA-Public Use
  Company Number: CA-Merck Healthcare KGaA-9278454

PATIENT
  Age: 64 Year
  Sex: Female

DRUGS (1)
  1. REBIF [Suspect]
     Active Substance: INTERFERON BETA-1A
     Indication: Multiple sclerosis
     Route: 058
     Dates: start: 20120402

REACTIONS (5)
  - Thrombosis [Unknown]
  - Multiple fractures [Unknown]
  - Synovial cyst [Unknown]
  - Pain in extremity [Unknown]
  - Muscular weakness [Unknown]
